FAERS Safety Report 13445637 (Version 1)
Quarter: 2017Q2

REPORT INFORMATION
  Report Type: Spontaneous
  Country: US (occurrence: US)
  Receive Date: 20170415
  Receipt Date: 20170415
  Transmission Date: 20170830
  Serious: Yes (Hospitalization)
  Sender: FDA-Public Use
  Company Number: US-JNJFOC-200210-0895

PATIENT
  Age: 20 Month
  Sex: Male

DRUGS (1)
  1. VISINE [Suspect]
     Active Substance: TETRAHYDROZOLINE HYDROCHLORIDE
     Indication: ACCIDENTAL EXPOSURE TO PRODUCT
     Dosage: DAILY DOSE TEXT: 15 ML ONCE
     Route: 048

REACTIONS (5)
  - Somnolence [Recovered/Resolved]
  - Nervousness [Recovered/Resolved]
  - Flushing [Recovered/Resolved]
  - Accidental exposure to product [Unknown]
  - Depressed level of consciousness [Recovered/Resolved]
